FAERS Safety Report 10453463 (Version 1)
Quarter: 2014Q3

REPORT INFORMATION
  Report Type: Spontaneous
  Country: GB (occurrence: GB)
  Receive Date: 20140915
  Receipt Date: 20140915
  Transmission Date: 20150326
  Serious: Yes (Hospitalization, Other)
  Sender: FDA-Public Use
  Company Number: GB-WATSON-2014-19726

PATIENT
  Age: 92 Year
  Sex: Female

DRUGS (8)
  1. GLICLAZIDE [Concomitant]
     Active Substance: GLICLAZIDE
     Indication: PRODUCT USED FOR UNKNOWN INDICATION
     Dosage: UNK
     Route: 065
  2. FERROUS SULFATE [Concomitant]
     Active Substance: FERROUS SULFATE\FERROUS SULFATE, DRIED
     Indication: PRODUCT USED FOR UNKNOWN INDICATION
     Dosage: 1 DF, BID
     Route: 065
  3. CELEBREX [Suspect]
     Active Substance: CELECOXIB
     Indication: LOCAL SWELLING
     Dosage: 200 MG, UNKNOWN
     Route: 048
     Dates: end: 20120616
  4. METFORMIN [Concomitant]
     Active Substance: METFORMIN HYDROCHLORIDE
     Indication: PRODUCT USED FOR UNKNOWN INDICATION
     Dosage: UNK
     Route: 065
  5. LANSOPRAZOLE. [Concomitant]
     Active Substance: LANSOPRAZOLE
     Indication: PRODUCT USED FOR UNKNOWN INDICATION
     Dosage: 30 MG, QAM
     Route: 065
  6. FUROSEMIDE (UNKNOWN) [Suspect]
     Active Substance: FUROSEMIDE
     Indication: LOCAL SWELLING
     Dosage: 60 MG, QAM
     Route: 048
     Dates: end: 20120616
  7. SIMVASTATIN. [Concomitant]
     Active Substance: SIMVASTATIN
     Indication: PRODUCT USED FOR UNKNOWN INDICATION
     Dosage: 40 MG, QPM
     Route: 065
  8. PERINDOPRIL (UNKNOWN) [Suspect]
     Active Substance: PERINDOPRIL
     Indication: PRODUCT USED FOR UNKNOWN INDICATION
     Dosage: 2 MG, DAILY; RE-START 5 DAYS POST DISCHARGE
     Route: 048
     Dates: end: 20120616

REACTIONS (7)
  - Dizziness [Recovered/Resolved]
  - Crepitations [Recovered/Resolved]
  - Renal failure acute [Recovered/Resolved]
  - Lower respiratory tract infection [Recovered/Resolved]
  - Cough [Recovered/Resolved]
  - Malaise [Recovered/Resolved]
  - Atrial fibrillation [Recovered/Resolved]

NARRATIVE: CASE EVENT DATE: 20120616
